FAERS Safety Report 4894907-9 (Version None)
Quarter: 2006Q1

REPORT INFORMATION
  Report Type: 
  Country: None (occurrence: None)
  Receive Date: 20060130
  Receipt Date: 20050218
  Transmission Date: 20060701
  Serious: No
  Sender: FDA-Public Use
  Company Number: US-BRISTOL-MYERS SQUIBB COMPANY-12868949

PATIENT
  Age: 51 Year
  Sex: Female
  Weight: 100 kg

DRUGS (5)
  1. GLUCOPHAGE [Suspect]
     Route: 048
  2. LEVOXYL [Concomitant]
  3. LOTENSIN [Concomitant]
  4. FOLIC ACID [Concomitant]
  5. AMARYL [Concomitant]

REACTIONS (2)
  - BLOOD GLUCOSE INCREASED [None]
  - WEIGHT DECREASED [None]
